FAERS Safety Report 6430377-7 (Version None)
Quarter: 2009Q4

REPORT INFORMATION
  Report Type: 
  Country: None (occurrence: None)
  Receive Date: 20091106
  Receipt Date: 20091028
  Transmission Date: 20100525
  Serious: Yes (Other)
  Sender: FDA-Public Use
  Company Number: ZA-GILEAD-2009-0025087

PATIENT
  Sex: Female

DRUGS (2)
  1. TRUVADA [Suspect]
     Indication: HIV INFECTION
     Dates: start: 20080130, end: 20090604
  2. KALETRA [Concomitant]
     Indication: HIV INFECTION
     Dates: start: 20080130

REACTIONS (1)
  - ABORTION SPONTANEOUS [None]
